FAERS Safety Report 14161648 (Version 1)
Quarter: 2017Q4

REPORT INFORMATION
  Report Type: Spontaneous
  Country: US (occurrence: US)
  Receive Date: 20171105
  Receipt Date: 20171105
  Transmission Date: 20180321
  Serious: No
  Sender: FDA-Public Use
  Company Number: None

PATIENT
  Sex: Female
  Weight: 96.75 kg

DRUGS (6)
  1. DOXACOZIN [Concomitant]
  2. ATORVASTATIN [Concomitant]
     Active Substance: ATORVASTATIN
  3. ATENOLOL. [Concomitant]
     Active Substance: ATENOLOL
  4. VICTOZA [Suspect]
     Active Substance: LIRAGLUTIDE
     Indication: TYPE 2 DIABETES MELLITUS
     Route: 058
     Dates: start: 20170502
  5. VALSARTEN [Concomitant]
     Active Substance: VALSARTAN
  6. OCCUVITE VITAMINS [Concomitant]

REACTIONS (3)
  - Frequent bowel movements [None]
  - Diarrhoea [None]
  - Impaired gastric emptying [None]
